FAERS Safety Report 19458063 (Version 1)
Quarter: 2021Q2

REPORT INFORMATION
  Report Type: Spontaneous
  Country: PL (occurrence: PL)
  Receive Date: 20210624
  Receipt Date: 20210624
  Transmission Date: 20210717
  Serious: Yes (Other)
  Sender: FDA-Public Use
  Company Number: PL-TEVA-2021-PL-1925297

PATIENT
  Age: 65 Year
  Sex: Female
  Weight: 60 kg

DRUGS (4)
  1. OXALIPLATINUM [Suspect]
     Active Substance: OXALIPLATIN
     Indication: COLON CANCER
     Dosage: 136,85
     Route: 042
     Dates: start: 20171024, end: 20171108
  2. FLUOROURACILUM [Suspect]
     Active Substance: FLUOROURACIL
     Indication: COLON CANCER
     Dosage: UNIT DOSE: 644 MG
     Route: 040
     Dates: start: 20171024, end: 20171108
  3. CALCII FOLINAS PENTAHYDRICUS [Suspect]
     Active Substance: LEUCOVORIN CALCIUM PENTAHYDRATE
     Indication: COLON CANCER
     Dosage: UNIT DOSE: 322 MG
     Route: 042
     Dates: start: 20171024, end: 20171108
  4. FLUOROURACILUM [Suspect]
     Active Substance: FLUOROURACIL
     Dosage: UNIT DOSE: 966 MG
     Route: 041
     Dates: start: 20171024, end: 20171108

REACTIONS (1)
  - Neutropenia [Unknown]

NARRATIVE: CASE EVENT DATE: 20171128
